FAERS Safety Report 18817462 (Version 2)
Quarter: 2021Q1

REPORT INFORMATION
  Report Type: Report from Study
  Country: CN (occurrence: CN)
  Receive Date: 20210201
  Receipt Date: 20210205
  Transmission Date: 20210419
  Serious: Yes (Death)
  Sender: FDA-Public Use
  Company Number: CN-ROCHE-2756868

PATIENT
  Age: 51 Year
  Sex: Female
  Weight: 55.5 kg

DRUGS (4)
  1. CISPLATIN. [Suspect]
     Active Substance: CISPLATIN
     Indication: HER2 POSITIVE BREAST CANCER
     Route: 065
     Dates: start: 20201222
  2. PYROTINIB MALEATE. [Suspect]
     Active Substance: PYROTINIB MALEATE
     Indication: HER2 POSITIVE BREAST CANCER
     Dosage: 400 MG/D, ONCE IN 3 WEEKS
     Route: 065
     Dates: start: 20201222
  3. TRASTUZUMAB. [Suspect]
     Active Substance: TRASTUZUMAB
     Indication: HER2 POSITIVE BREAST CANCER
     Dosage: FIRST WEEK LOAD DOSE 4MG/ KG, FOLLOWED BY 2 MG/ KG PER WEEK, DAY 1
     Route: 065
     Dates: start: 20201222
  4. PACLITAXEL. [Suspect]
     Active Substance: PACLITAXEL
     Indication: HER2 POSITIVE BREAST CANCER
     Route: 065
     Dates: start: 20201222

REACTIONS (1)
  - Septic shock [Fatal]

NARRATIVE: CASE EVENT DATE: 20201228
